FAERS Safety Report 6644007-2 (Version None)
Quarter: 2010Q1

REPORT INFORMATION
  Report Type: 
  Country: None (occurrence: None)
  Receive Date: 20100322
  Receipt Date: 20100309
  Transmission Date: 20100710
  Serious: Yes (Other)
  Sender: FDA-Public Use
  Company Number: DE-ELI_LILLY_AND_COMPANY-DE201003002609

PATIENT

DRUGS (1)
  1. CYMBALTA [Suspect]
     Dosage: 60 MG, UNK
     Route: 064
     Dates: end: 20090421

REACTIONS (3)
  - DRUG EXPOSURE DURING PREGNANCY [None]
  - LEUKAEMIA [None]
  - MATERNAL DRUGS AFFECTING FOETUS [None]
